FAERS Safety Report 7570087-6 (Version None)
Quarter: 2011Q2

REPORT INFORMATION
  Report Type: 
  Country: None (occurrence: None)
  Receive Date: 20110525
  Receipt Date: 20110328
  Transmission Date: 20111010
  Serious: No
  Sender: FDA-Public Use
  Company Number: 325733

PATIENT
  Age: 60 Year
  Sex: Female
  Weight: 86.6 kg

DRUGS (3)
  1. VICTOZA [Suspect]
     Indication: TYPE 2 DIABETES MELLITUS
     Dosage: 1.8 MG, QD, SUBCUTANEOUS
     Route: 058
  2. ONGLYZA (SAXAGLIPTIN HYDROCHLORIDE) [Concomitant]
  3. GLIMEPIRIDE [Concomitant]

REACTIONS (3)
  - WEIGHT DECREASED [None]
  - FUNGAL INFECTION [None]
  - BLOOD GLUCOSE INCREASED [None]
